FAERS Safety Report 9295086 (Version 1)
Quarter: 2013Q2

REPORT INFORMATION
  Report Type: Spontaneous
  Country: US (occurrence: US)
  Receive Date: 20130517
  Receipt Date: 20130517
  Transmission Date: 20140414
  Serious: Yes (Other)
  Sender: FDA-Public Use
  Company Number: US-ASTELLAS-2013US005103

PATIENT
  Age: 81 Year
  Sex: Female
  Weight: 82 kg

DRUGS (2)
  1. VESICARE [Suspect]
     Indication: MIXED INCONTINENCE
     Dosage: 5 MG, UID/QD
     Route: 048
  2. ANTIHYPERTENSIVES [Concomitant]
     Indication: BLOOD PRESSURE
     Dosage: UNK
     Route: 065

REACTIONS (1)
  - Knee arthroplasty [Unknown]
